FAERS Safety Report 5126945-5 (Version None)
Quarter: 2006Q4

REPORT INFORMATION
  Report Type: 
  Country: None (occurrence: None)
  Receive Date: 20061013
  Receipt Date: 20061004
  Transmission Date: 20070319
  Serious: Yes (Other)
  Sender: FDA-Public Use
  Company Number: 2006AC01814

PATIENT
  Age: 62 Year
  Sex: Male

DRUGS (2)
  1. IRESSA [Suspect]
     Indication: LARYNGEAL CANCER
     Dosage: INTERRUPTED FOR 4 DAYS DURING THIS TIME.
     Route: 048
     Dates: start: 20030601, end: 20040201
  2. DOXORUBICIN [Suspect]
     Indication: LARYNGEAL CANCER
     Dosage: LIPOSOMAL.
     Dates: start: 20021201

REACTIONS (7)
  - BLISTER [None]
  - DISEASE PROGRESSION [None]
  - ERYTHEMA [None]
  - FACE OEDEMA [None]
  - PALMAR-PLANTAR ERYTHRODYSAESTHESIA SYNDROME [None]
  - PARONYCHIA [None]
  - SKIN TOXICITY [None]
